FAERS Safety Report 9366749 (Version 2)
Quarter: 2013Q3

REPORT INFORMATION
  Report Type: Spontaneous
  Country: IN (occurrence: None)
  Receive Date: 20130620
  Receipt Date: 20130703
  Transmission Date: 20140515
  Serious: Yes (Other)
  Sender: FDA-Public Use
  Company Number: MC201300330

PATIENT
  Age: 78 Year
  Sex: Male
  Weight: 60 kg

DRUGS (3)
  1. ANGIOMAX, ANGIOX (BIVALIRUDIN) INJECTION [Suspect]
     Indication: PERCUTANEOUS CORONARY INTERVENTION
     Route: 040
     Dates: start: 20130608, end: 20130608
  2. HEPARIN (HEPARIN) [Concomitant]
  3. PLATELET AGGREGATION INHIBITORS EXCL. HEPARIN [Concomitant]

REACTIONS (2)
  - Reperfusion injury [None]
  - Thrombosis in device [None]
